FAERS Safety Report 23574939 (Version 1)
Quarter: 2024Q1

REPORT INFORMATION
  Report Type: Spontaneous
  Country: CA (occurrence: CA)
  Receive Date: 20240228
  Receipt Date: 20240228
  Transmission Date: 20240410
  Serious: Yes (Other)
  Sender: FDA-Public Use
  Company Number: CA-GLAXOSMITHKLINE-CA2024AMR024694

PATIENT

DRUGS (4)
  1. WELLBUTRIN [Suspect]
     Active Substance: BUPROPION HYDROCHLORIDE
     Indication: Product used for unknown indication
     Dosage: UNK
     Route: 065
  2. NIZORAL [Suspect]
     Active Substance: KETOCONAZOLE
     Indication: Product used for unknown indication
     Dosage: UNK
     Route: 061
  3. PANTOPRAZOLE [Suspect]
     Active Substance: PANTOPRAZOLE
     Indication: Product used for unknown indication
     Dosage: UNK
  4. YUFLYMA [Suspect]
     Active Substance: ADALIMUMAB-AATY
     Indication: Crohn^s disease
     Dosage: 40 MG, Q2W

REACTIONS (9)
  - Crohn^s disease [Recovered/Resolved]
  - Abdominal distension [Recovered/Resolved]
  - Abscess [Recovered/Resolved]
  - Fatigue [Recovered/Resolved]
  - Pyrexia [Recovered/Resolved]
  - Myalgia [Recovered/Resolved]
  - Incorrect dose administered by product [Unknown]
  - Intentional dose omission [Recovered/Resolved]
  - Product leakage [Recovered/Resolved]
